FAERS Safety Report 5297871-6 (Version None)
Quarter: 2007Q2

REPORT INFORMATION
  Report Type: 
  Country: None (occurrence: None)
  Receive Date: 20070416
  Receipt Date: 20070403
  Transmission Date: 20071010
  Serious: Yes (Other)
  Sender: FDA-Public Use
  Company Number: CH-ROCHE-491356

PATIENT
  Age: 57 Year
  Sex: Male
  Weight: 160 kg

DRUGS (2)
  1. TORSEMIDE [Suspect]
     Route: 048
     Dates: start: 20050615, end: 20060615
  2. EUTHYROX [Concomitant]
     Indication: HYPOTHYROIDISM

REACTIONS (2)
  - ASPERMIA [None]
  - GASTROINTESTINAL DISORDER [None]
